FAERS Safety Report 7629454-4 (Version None)
Quarter: 2011Q3

REPORT INFORMATION
  Report Type: 
  Country: None (occurrence: None)
  Receive Date: 20110715
  Receipt Date: 20110630
  Transmission Date: 20111222
  Serious: Yes (Other)
  Sender: FDA-Public Use
  Company Number: 2011RR-45904

PATIENT
  Age: 39 Year
  Sex: Female

DRUGS (6)
  1. METFORMIN HCL [Suspect]
     Indication: PRODUCT USED FOR UNKNOWN INDICATION
  2. INSULIN [Suspect]
     Indication: DIABETES MELLITUS
     Dosage: 40 IU, BID
  3. PREDNISOLONE [Suspect]
     Indication: SARCOIDOSIS
     Dosage: 30 MG
  4. PREDNISOLONE [Suspect]
     Indication: SARCOIDOSIS
     Dosage: 20 MG
  5. GLICLAZIDE (GLICLAZIDE) [Concomitant]
  6. INSULIN [Suspect]
     Indication: DIABETES MELLITUS

REACTIONS (3)
  - LACTIC ACIDOSIS [None]
  - WEIGHT INCREASED [None]
  - DIABETES MELLITUS [None]
